FAERS Safety Report 22319611 (Version 1)
Quarter: 2023Q2

REPORT INFORMATION
  Report Type: Spontaneous
  Country: CN (occurrence: CN)
  Receive Date: 20230515
  Receipt Date: 20230515
  Transmission Date: 20230722
  Serious: Yes (Life-Threatening, Other)
  Sender: FDA-Public Use
  Company Number: CN-BAYER-2023A067490

PATIENT
  Age: 67 Year
  Sex: Male
  Weight: 80 kg

DRUGS (2)
  1. GADOBUTROL [Suspect]
     Active Substance: GADOBUTROL
     Indication: Magnetic resonance imaging
     Dosage: 8 ML, ONCE
     Route: 041
     Dates: start: 20230413, end: 20230413
  2. GADOBUTROL [Suspect]
     Active Substance: GADOBUTROL
     Indication: Benign prostatic hyperplasia

REACTIONS (4)
  - Anaphylactic shock [Recovering/Resolving]
  - Restlessness [Recovering/Resolving]
  - Flushing [Recovering/Resolving]
  - Incorrect drug administration rate [None]

NARRATIVE: CASE EVENT DATE: 20230413
